FAERS Safety Report 6067875-4 (Version None)
Quarter: 2009Q1

REPORT INFORMATION
  Report Type: 
  Country: None (occurrence: None)
  Receive Date: 20090203
  Receipt Date: 20090119
  Transmission Date: 20090719
  Serious: Yes (Hospitalization)
  Sender: FDA-Public Use
  Company Number: KV200900111

PATIENT
  Age: 98 Year
  Sex: Female
  Weight: 44.4 kg

DRUGS (8)
  1. ISOSORBIDE MONONITRATE [Suspect]
     Indication: CARDIAC DISORDER
     Dosage: 30 MG, QD, ORAL
     Route: 048
  2. POTASSIUM (POTASSIUM) [Concomitant]
  3. PREDNISONE TAB [Concomitant]
  4. LOPRESSOR (METOPROLOL TARTRATE) [Concomitant]
  5. PRAVACHOL [Concomitant]
  6. PROTONIX [Concomitant]
  7. NITRO-DUR [Concomitant]
  8. ASPIRIN [Concomitant]

REACTIONS (3)
  - FEELING ABNORMAL [None]
  - PRODUCT QUALITY ISSUE [None]
  - WEIGHT DECREASED [None]
